FAERS Safety Report 5856442-0 (Version None)
Quarter: 2008Q3

REPORT INFORMATION
  Report Type: 
  Country: None (occurrence: None)
  Receive Date: 20080825
  Receipt Date: 20080505
  Transmission Date: 20090109
  Serious: No
  Sender: FDA-Public Use
  Company Number: A0725850A

PATIENT
  Sex: Female

DRUGS (6)
  1. VERAMYST [Suspect]
  2. FLONASE [Concomitant]
  3. SINGULAIR [Concomitant]
  4. PREVACID [Concomitant]
  5. PROVENTIL [Concomitant]
  6. INTAL [Concomitant]

REACTIONS (1)
  - EPISTAXIS [None]
